FAERS Safety Report 10150402 (Version 1)
Quarter: 2014Q2

REPORT INFORMATION
  Report Type: Spontaneous
  Country: US (occurrence: US)
  Receive Date: 20140502
  Receipt Date: 20140502
  Transmission Date: 20141212
  Serious: Yes (Death)
  Sender: FDA-Public Use
  Company Number: US-MERCK-1404USA014821

PATIENT
  Age: 37 Year
  Sex: Male

DRUGS (1)
  1. PROPECIA [Suspect]
     Indication: PRODUCT USED FOR UNKNOWN INDICATION
     Dosage: 1 MG, UNK
     Route: 048

REACTIONS (2)
  - Completed suicide [Fatal]
  - Adverse event [Unknown]
